FAERS Safety Report 5974112-5 (Version None)
Quarter: 2008Q4

REPORT INFORMATION
  Report Type: 
  Country: None (occurrence: None)
  Receive Date: 20081201
  Receipt Date: 20081128
  Transmission Date: 20090506
  Serious: Yes (Hospitalization)
  Sender: FDA-Public Use
  Company Number: CH-PFIZER INC-2008077517

PATIENT
  Age: 56 Year
  Sex: Male

DRUGS (6)
  1. DETRUSITOL SR [Suspect]
     Indication: URINARY INCONTINENCE
     Route: 048
     Dates: start: 20080715
  2. ENALAPRIL MALEATE [Concomitant]
     Route: 048
  3. TIATRAL [Concomitant]
     Route: 048
     Dates: start: 20030301, end: 20080801
  4. CALCIUM [Concomitant]
     Route: 048
  5. ACETAMINOPHEN [Concomitant]
     Route: 048
  6. ZURCAL [Concomitant]
     Route: 048

REACTIONS (1)
  - ATRIAL FIBRILLATION [None]
